FAERS Safety Report 4342776-8 (Version None)
Quarter: 2004Q2

REPORT INFORMATION
  Report Type: 
  Country: None (occurrence: None)
  Receive Date: 20040409
  Receipt Date: 20030814
  Transmission Date: 20050107
  Serious: Yes (Hospitalization)
  Sender: FDA-Public Use
  Company Number: 03P-163-0230215-00

PATIENT
  Age: 40 Year
  Sex: Male

DRUGS (4)
  1. DEPAKOTE [Suspect]
     Indication: AFFECTIVE DISORDER
     Dosage: 500 MG, ONE TABLET EVERY MORNING, PER ORAL
     Route: 048
     Dates: start: 20000101, end: 20030801
  2. DEPAKOTE [Suspect]
     Dosage: 500 MG, TWO TABLETS AT NIGHT, PER ORAL
     Route: 048
  3. FLUPHENAZINE DECANOATE [Concomitant]
  4. PAROXETINE HYDROCHLORIDE [Concomitant]

REACTIONS (1)
  - PANCREATITIS [None]
